FAERS Safety Report 14023932 (Version 1)
Quarter: 2017Q3

REPORT INFORMATION
  Report Type: Spontaneous
  Country: US (occurrence: US)
  Receive Date: 20170928
  Receipt Date: 20170928
  Transmission Date: 20171128
  Serious: No
  Sender: FDA-Public Use
  Company Number: US-SA-2016SA227563

PATIENT
  Age: 46 Year
  Sex: Female

DRUGS (16)
  1. ZANAFLEX [Concomitant]
     Active Substance: TIZANIDINE HYDROCHLORIDE
  2. FAMOTIDINE. [Concomitant]
     Active Substance: FAMOTIDINE
  3. AMOXICILLIN/CLAVULANATE POTASSIUM [Concomitant]
  4. FENATYL [Concomitant]
     Active Substance: FENTANYL
  5. BYSTOLIC [Concomitant]
     Active Substance: NEBIVOLOL HYDROCHLORIDE
  6. AUBAGIO [Suspect]
     Active Substance: TERIFLUNOMIDE
     Indication: MULTIPLE SCLEROSIS
     Route: 065
     Dates: start: 20160122
  7. NYSTATIN. [Concomitant]
     Active Substance: NYSTATIN
  8. ONDANSETRON [Concomitant]
     Active Substance: ONDANSETRON
     Dosage: ODT
  9. ACETAMINOPHEN AND CODEINE [Concomitant]
     Active Substance: ACETAMINOPHEN\CODEINE PHOSPHATE
  10. DULERA [Concomitant]
     Active Substance: FORMOTEROL FUMARATE DIHYDRATE\MOMETASONE FUROATE
  11. IBUPROFEN. [Concomitant]
     Active Substance: IBUPROFEN
  12. CLONIDINE HYDROCHLORIDE. [Concomitant]
     Active Substance: CLONIDINE HYDROCHLORIDE
     Dosage: 0.1 MG
  13. TRAZODONE HYDROCHLORIDE. [Concomitant]
     Active Substance: TRAZODONE HYDROCHLORIDE
  14. PATADAY [Concomitant]
     Active Substance: OLOPATADINE HYDROCHLORIDE
  15. FLUTICASONE PROPIONATE. [Concomitant]
     Active Substance: FLUTICASONE PROPIONATE
  16. PROAIR HFA [Concomitant]
     Active Substance: ALBUTEROL SULFATE

REACTIONS (1)
  - Drug ineffective [Unknown]

NARRATIVE: CASE EVENT DATE: 2016
